FAERS Safety Report 4279845-7 (Version None)
Quarter: 2004Q1

REPORT INFORMATION
  Report Type: 
  Country: None (occurrence: None)
  Receive Date: 20040126
  Receipt Date: 20031003
  Transmission Date: 20041129
  Serious: Yes (Death)
  Sender: FDA-Public Use
  Company Number: S03-NZL-03214-01

PATIENT
  Age: 40 Year
  Sex: Female

DRUGS (5)
  1. CIPRAMIL (CITALOPRAM HYDROBROMIDE) [Suspect]
     Indication: DEPRESSION
     Dosage: 40 MG QD PO
     Route: 048
     Dates: start: 20010101
  2. CIPRAMIL (CITALOPRAM HYDROBROMIDE) [Suspect]
     Indication: DEPRESSION
     Dates: start: 20021120, end: 20021120
  3. QUETIAPINE [Suspect]
     Indication: PSYCHOTIC DISORDER
     Dates: start: 20021120, end: 20021120
  4. QUETIAPINE [Suspect]
     Indication: PSYCHOTIC DISORDER
     Dosage: 700 MG QD PO
     Route: 048
     Dates: start: 20010101
  5. ERYTHROMYCIN [Concomitant]

REACTIONS (4)
  - COMPLETED SUICIDE [None]
  - FALL [None]
  - MARITAL PROBLEM [None]
  - OVERDOSE [None]
